FAERS Safety Report 19173501 (Version 1)
Quarter: 2021Q2

REPORT INFORMATION
  Report Type: Spontaneous
  Country: BR (occurrence: BR)
  Receive Date: 20210423
  Receipt Date: 20210423
  Transmission Date: 20210717
  Serious: Yes (Other)
  Sender: FDA-Public Use
  Company Number: BR-TEVA-2021-BR-1902307

PATIENT
  Age: 44 Year
  Sex: Female

DRUGS (2)
  1. AJOVY [Suspect]
     Active Substance: FREMANEZUMAB-VFRM
     Indication: MIGRAINE
     Route: 065
     Dates: start: 20200820
  2. DIPYRONE [Concomitant]
     Active Substance: DIPYRONE
     Dosage: 1 G

REACTIONS (9)
  - Ovarian cyst ruptured [Unknown]
  - Headache [Unknown]
  - Arthralgia [Unknown]
  - Weight increased [Unknown]
  - Injection site pain [Unknown]
  - Constipation [Recovered/Resolved]
  - Alopecia [Unknown]
  - Injection site erythema [Unknown]
  - Myalgia [Unknown]

NARRATIVE: CASE EVENT DATE: 20210110
